FAERS Safety Report 8136935-6 (Version None)
Quarter: 2012Q1

REPORT INFORMATION
  Report Type: 
  Country: None (occurrence: None)
  Receive Date: 20120214
  Receipt Date: 20120213
  Transmission Date: 20120608
  Serious: Yes (Hospitalization, Disabling, Other)
  Sender: FDA-Public Use
  Company Number: US-MERCK-1108USA03539

PATIENT
  Age: 74 Year
  Sex: Female
  Weight: 80 kg

DRUGS (7)
  1. FOSAPREPITANT DIMEGLUMINE [Suspect]
     Indication: PROPHYLAXIS OF NAUSEA AND VOMITING
     Dosage: ON DAY ONE OF CHEMOTHERAPY
     Route: 041
     Dates: start: 20110829, end: 20110829
  2. ALOXI [Concomitant]
     Route: 042
     Dates: start: 20110829
  3. CYANOCOBALAMIN [Concomitant]
     Route: 065
  4. ACETAMINOPHEN [Concomitant]
     Route: 065
  5. ZOFRAN [Concomitant]
     Route: 065
  6. DEXAMETHASONE [Concomitant]
     Route: 042
     Dates: start: 20110829
  7. BENICAR [Concomitant]
     Route: 065

REACTIONS (14)
  - MALAISE [None]
  - OXYGEN SATURATION DECREASED [None]
  - CHEST PAIN [None]
  - ARTHRALGIA [None]
  - HEADACHE [None]
  - RASH GENERALISED [None]
  - NAUSEA [None]
  - PELVIC PAIN [None]
  - DYSPNOEA [None]
  - BACK PAIN [None]
  - PAIN [None]
  - FLUSHING [None]
  - PAIN IN EXTREMITY [None]
  - BLOOD PRESSURE INCREASED [None]
